FAERS Safety Report 11559067 (Version 2)
Quarter: 2015Q4

REPORT INFORMATION
  Report Type: Spontaneous
  Country: US (occurrence: US)
  Receive Date: 20150928
  Receipt Date: 20151028
  Transmission Date: 20160304
  Serious: Yes (Death, Other)
  Sender: FDA-Public Use
  Company Number: US-BEH-2015054047

PATIENT
  Age: 28 Year
  Sex: Female

DRUGS (5)
  1. METHYLPREDNISOLONE. [Suspect]
     Active Substance: METHYLPREDNISOLONE
  2. RITUXIMAB [Suspect]
     Active Substance: RITUXIMAB
  3. INTRAVENOUS IMMUNOGLOBULIN [Suspect]
     Active Substance: HUMAN IMMUNOGLOBULIN G
     Indication: THROMBOTIC THROMBOCYTOPENIC PURPURA
  4. PLASMAPHERESIS [Suspect]
     Active Substance: UNSPECIFIED INGREDIENT
  5. VINCRISTINE [Suspect]
     Active Substance: VINCRISTINE

REACTIONS (5)
  - Multi-organ failure [Fatal]
  - Hypoxia [Fatal]
  - Drug ineffective for unapproved indication [Unknown]
  - Cardiac arrest [Fatal]
  - Maternal exposure during pregnancy [Recovered/Resolved]
